FAERS Safety Report 7358128-2 (Version None)
Quarter: 2011Q1

REPORT INFORMATION
  Report Type: 
  Country: None (occurrence: None)
  Receive Date: 20110314
  Receipt Date: 20110314
  Transmission Date: 20110831
  Serious: Yes (Hospitalization)
  Sender: FDA-Public Use
  Company Number: None

PATIENT
  Sex: Female

DRUGS (1)
  1. NORDITROPIN [Suspect]
     Dosage: 0.7 MG QD SQ
     Route: 058

REACTIONS (2)
  - MYOCARDIAL INFARCTION [None]
  - ESCHERICHIA URINARY TRACT INFECTION [None]
